FAERS Safety Report 8241281-6 (Version None)
Quarter: 2012Q1

REPORT INFORMATION
  Report Type: 
  Country: None (occurrence: None)
  Receive Date: 20120328
  Receipt Date: 20120320
  Transmission Date: 20120608
  Serious: Yes (Hospitalization)
  Sender: FDA-Public Use
  Company Number: FR-EISAI INC-E7389-01989-CLI-JP

PATIENT
  Sex: Female
  Weight: 68 kg

DRUGS (6)
  1. OXYCONTIN [Concomitant]
     Indication: ANALGESIC THERAPY
  2. ACETAMINOPHEN [Concomitant]
     Indication: ANALGESIC THERAPY
  3. VALSARTAN  AND HYDROCHLOROTHIAZIDE [Concomitant]
     Indication: HYPERTENSION
  4. HALAVEN [Suspect]
     Indication: BREAST CANCER
     Route: 041
     Dates: start: 20111213
  5. LEVOCARNIL [Concomitant]
     Indication: CARNITINE DEFICIENCY
  6. NEXIUM [Concomitant]
     Indication: PROPHYLAXIS

REACTIONS (1)
  - HYPERGLYCAEMIA [None]
